FAERS Safety Report 8553014-4 (Version None)
Quarter: 2012Q3

REPORT INFORMATION
  Report Type: 
  Country: None (occurrence: None)
  Receive Date: 20120724
  Receipt Date: 20120724
  Transmission Date: 20120928
  Serious: Yes (Other)
  Sender: FDA-Public Use
  Company Number: None

PATIENT
  Age: 73 Year
  Sex: Female
  Weight: 57.1532 kg

DRUGS (1)
  1. RECLAST [Suspect]

REACTIONS (3)
  - ARTHRALGIA [None]
  - SPINAL PAIN [None]
  - MUSCULOSKELETAL CHEST PAIN [None]
